FAERS Safety Report 14690888 (Version 1)
Quarter: 2018Q1

REPORT INFORMATION
  Report Type: Spontaneous
  Country: CN (occurrence: CN)
  Receive Date: 20180328
  Receipt Date: 20180328
  Transmission Date: 20180509
  Serious: Yes (Hospitalization)
  Sender: FDA-Public Use
  Company Number: CN-MYLANLABS-2018M1018513

PATIENT
  Age: 53 Year
  Sex: Male
  Weight: 70 kg

DRUGS (7)
  1. LORATADINE. [Concomitant]
     Active Substance: LORATADINE
     Indication: PANCREATITIS ACUTE
     Dosage: 10 MG, QD
     Route: 048
  2. FUROSEMIDE. [Concomitant]
     Active Substance: FUROSEMIDE
     Indication: PANCREATITIS ACUTE
     Dosage: 20 MG
     Route: 042
  3. FUROSEMIDE. [Concomitant]
     Active Substance: FUROSEMIDE
     Dosage: 20-40 MG DAILY
     Route: 042
  4. VANCOMYCIN [Suspect]
     Active Substance: VANCOMYCIN
     Indication: PANCREATITIS ACUTE
     Route: 042
     Dates: start: 201603
  5. CEFOPERAZONE SODIUM [Suspect]
     Active Substance: CEFOPERAZONE SODIUM
     Indication: PANCREATITIS ACUTE
     Route: 042
     Dates: start: 2016, end: 2016
  6. IMIPENEM AND CILASTATIN SODIUM [Suspect]
     Active Substance: CILASTATIN SODIUM\IMIPENEM
     Indication: PANCREATITIS ACUTE
     Route: 042
     Dates: start: 20160323
  7. METRONIDAZOLE. [Suspect]
     Active Substance: METRONIDAZOLE
     Indication: PANCREATITIS ACUTE
     Dosage: 0.5 G, QD
     Route: 042
     Dates: start: 2016, end: 2016

REACTIONS (1)
  - Tubulointerstitial nephritis [Recovered/Resolved]
